FAERS Safety Report 21481695 (Version 1)
Quarter: 2022Q4

REPORT INFORMATION
  Report Type: Report from Study
  Country: ES (occurrence: ES)
  Receive Date: 20221020
  Receipt Date: 20221020
  Transmission Date: 20230112
  Serious: Yes (Other)
  Sender: FDA-Public Use
  Company Number: ES-SUN PHARMACEUTICAL INDUSTRIES LTD-2022R1-359541

PATIENT
  Sex: Female

DRUGS (1)
  1. VALACYCLOVIR [Suspect]
     Active Substance: VALACYCLOVIR HYDROCHLORIDE
     Indication: Congenital cytomegalovirus infection
     Dosage: 8 GRAM, DAILY
     Route: 048

REACTIONS (7)
  - Exposure during pregnancy [Unknown]
  - Therapy partial responder [Unknown]
  - Cerebral cyst [Unknown]
  - Adhesion [Unknown]
  - Vascular calcification [Unknown]
  - White matter lesion [Unknown]
  - Off label use [Unknown]
